FAERS Safety Report 8115584 (Version 5)
Quarter: 2012Q4

REPORT INFORMATION
  Report Type: 
  Country: JP (occurrence: JP)
  Receive Date: 20110831
  Receipt Date: 20121219
  Transmission Date: 20130627
  Serious: Yes (Life-Threatening)
  Sender: FDA-Public Use
  Company Number: PHHY2011JP76074

PATIENT
  Age: 71 Year
  Sex: Male
  Weight: 41 kg

DRUGS (5)
  1. TASIGNA [Suspect]
     Indication: CHRONIC MYELOID LEUKAEMIA
     Dosage: 400 mg
     Route: 048
     Dates: start: 20110816, end: 20110816
  2. TASIGNA [Suspect]
     Dosage: 150 mg, daily
     Route: 048
     Dates: start: 20110817, end: 20110817
  3. POLARAMINE [Concomitant]
  4. BERIZYM [Concomitant]
  5. MAGMITT [Concomitant]

REACTIONS (6)
  - Interstitial lung disease [Recovered/Resolved]
  - Pyrexia [Recovered/Resolved]
  - Pleural effusion [Unknown]
  - PO2 decreased [Recovered/Resolved]
  - Haemoglobin decreased [Unknown]
  - Haematocrit decreased [Unknown]
